FAERS Safety Report 14426134 (Version 2)
Quarter: 2018Q1

REPORT INFORMATION
  Report Type: Spontaneous
  Country: SE (occurrence: SE)
  Receive Date: 20180123
  Receipt Date: 20180213
  Transmission Date: 20180509
  Serious: Yes (Hospitalization)
  Sender: FDA-Public Use
  Company Number: SE-PFIZER INC-2017537939

PATIENT
  Age: 32 Year
  Sex: Female

DRUGS (3)
  1. FICORTRIL /00028604/ [Suspect]
     Active Substance: HYDROCORTISONE
     Indication: EYE IRRITATION
     Dosage: THIN LAYER
     Dates: start: 201712
  2. FICORTRIL /00028604/ [Suspect]
     Active Substance: HYDROCORTISONE
     Indication: ECZEMA
  3. FICORTRIL /00028604/ [Suspect]
     Active Substance: HYDROCORTISONE
     Indication: DRY SKIN

REACTIONS (9)
  - Pruritus [Recovered/Resolved]
  - Gastroenteritis salmonella [Unknown]
  - Eczema [Recovered/Resolved]
  - Erythema [Unknown]
  - Dry skin [Unknown]
  - Eyelid skin dryness [Unknown]
  - Skin irritation [Unknown]
  - Rosacea [Unknown]
  - Burning sensation [Not Recovered/Not Resolved]

NARRATIVE: CASE EVENT DATE: 201712
